FAERS Safety Report 9564697 (Version 2)
Quarter: 2013Q4

REPORT INFORMATION
  Report Type: Spontaneous
  Country: US (occurrence: US)
  Receive Date: 20130930
  Receipt Date: 20131007
  Transmission Date: 20140711
  Serious: No
  Sender: FDA-Public Use
  Company Number: US-PFIZER INC-2013278918

PATIENT
  Age: 39 Year
  Sex: Female
  Weight: 66.67 kg

DRUGS (3)
  1. LYRICA [Suspect]
     Indication: NEURALGIA
     Dosage: 75 MG, 2X/DAY
     Route: 048
     Dates: start: 20130909
  2. XANAX [Concomitant]
     Dosage: UNK
  3. PERCOCET [Concomitant]
     Indication: NEURALGIA
     Dosage: UNK

REACTIONS (2)
  - Drug screen false positive [Unknown]
  - Dry mouth [Unknown]
